FAERS Safety Report 25820707 (Version 2)
Quarter: 2025Q4

REPORT INFORMATION
  Report Type: Spontaneous
  Country: US (occurrence: US)
  Receive Date: 20250919
  Receipt Date: 20251017
  Transmission Date: 20260119
  Serious: No
  Sender: NOVARTIS
  Company Number: US-002147023-NVSC2025US142604

PATIENT
  Age: 70 Year
  Sex: Female

DRUGS (1)
  1. LEQVIO [Suspect]
     Active Substance: INCLISIRAN SODIUM
     Indication: Low density lipoprotein
     Dosage: 1.5 ML (284MG/1.5 ML, INITIAL DOSE, 3 MONTH THEN EVERY SIX MONTHS)
     Route: 058

REACTIONS (1)
  - Diarrhoea [Recovered/Resolved]
